FAERS Safety Report 13198936 (Version 1)
Quarter: 2017Q1

REPORT INFORMATION
  Report Type: Spontaneous
  Country: GB (occurrence: GB)
  Receive Date: 20170208
  Receipt Date: 20170208
  Transmission Date: 20170428
  Serious: Yes (Other)
  Sender: FDA-Public Use
  Company Number: PHFR2017GB000955

PATIENT
  Age: 28 Year
  Sex: Female

DRUGS (4)
  1. PEGVISOMANT [Suspect]
     Active Substance: PEGVISOMANT
     Indication: INSULIN-LIKE GROWTH FACTOR INCREASED
     Route: 065
  2. OCTREOTIDE. [Suspect]
     Active Substance: OCTREOTIDE
     Indication: PRODUCT USED FOR UNKNOWN INDICATION
     Dosage: 20 MG, QMO (EVERY 4 WEEKS)
     Route: 065
  3. OCTREOTIDE. [Suspect]
     Active Substance: OCTREOTIDE
     Dosage: 30 MG, QMO (EVERY 4 WEEKS)
     Route: 065
  4. PEGVISOMANT [Suspect]
     Active Substance: PEGVISOMANT
     Dosage: 20 MG, QD
     Route: 065

REACTIONS (2)
  - Pituitary tumour recurrent [Unknown]
  - Neoplasm progression [Unknown]

NARRATIVE: CASE EVENT DATE: 201101
